FAERS Safety Report 14476504 (Version 7)
Quarter: 2019Q4

REPORT INFORMATION
  Report Type: Spontaneous
  Country: US (occurrence: US)
  Receive Date: 20180201
  Receipt Date: 20191028
  Transmission Date: 20200122
  Serious: Yes (Other)
  Sender: FDA-Public Use
  Company Number: US-SA-2018SA011619

PATIENT
  Age: 77 Year
  Sex: Male

DRUGS (1)
  1. PRALUENT [Suspect]
     Active Substance: ALIROCUMAB
     Indication: HYPERLIPIDAEMIA
     Dosage: 150 MG,QOW
     Route: 058
     Dates: start: 20170911

REACTIONS (9)
  - Rash pruritic [Recovering/Resolving]
  - Erythema [Not Recovered/Not Resolved]
  - Eczema [Unknown]
  - Muscle hypertrophy [Unknown]
  - Feeling hot [Not Recovered/Not Resolved]
  - Erythema [Unknown]
  - Rash [Unknown]
  - Muscular weakness [Unknown]
  - Myalgia [Not Recovered/Not Resolved]

NARRATIVE: CASE EVENT DATE: 20170913
